FAERS Safety Report 10494724 (Version 2)
Quarter: 2014Q4

REPORT INFORMATION
  Report Type: Spontaneous
  Country: US (occurrence: None)
  Receive Date: 20141001
  Receipt Date: 20141023
  Transmission Date: 20150528
  Serious: No
  Sender: FDA-Public Use
  Company Number: 2014-US-012225

PATIENT
  Sex: Female
  Weight: 105.6 kg

DRUGS (1)
  1. XYREM [Suspect]
     Active Substance: SODIUM OXYBATE
     Indication: DYSSOMNIA
     Route: 048
     Dates: start: 200612, end: 2007

REACTIONS (9)
  - Fall [None]
  - Back pain [None]
  - Off label use [None]
  - Pain in extremity [None]
  - Huerthle cell carcinoma [None]
  - Intervertebral disc protrusion [None]
  - Contusion [None]
  - Blood pressure increased [None]
  - Vomiting [None]

NARRATIVE: CASE EVENT DATE: 2011
